FAERS Safety Report 5749234-4 (Version None)
Quarter: 2008Q2

REPORT INFORMATION
  Report Type: 
  Country: None (occurrence: None)
  Receive Date: 20080527
  Receipt Date: 20080514
  Transmission Date: 20081010
  Serious: Yes (Other)
  Sender: FDA-Public Use
  Company Number: CA-AMGEN-US281600

PATIENT
  Sex: Male

DRUGS (5)
  1. NEUPOGEN [Suspect]
     Indication: DRUG USE FOR UNKNOWN INDICATION
     Route: 058
  2. FLUCONAZOLE [Concomitant]
     Route: 048
  3. MORPHINE [Concomitant]
     Route: 048
  4. OMEPRAZOLE [Concomitant]
     Route: 048
  5. PIPERACILLIN AND TAZOBACTAM [Concomitant]
     Route: 042

REACTIONS (2)
  - BONE PAIN [None]
  - MYOCARDIAL INFARCTION [None]
